FAERS Safety Report 9284356 (Version 1)
Quarter: 2013Q2

REPORT INFORMATION
  Report Type: Spontaneous
  Country: SK (occurrence: SK)
  Receive Date: 20130510
  Receipt Date: 20130510
  Transmission Date: 20140414
  Serious: Yes (Death, Life-Threatening, Hospitalization, Other)
  Sender: FDA-Public Use
  Company Number: SK-ABBOTT-04P-260-0264660-00

PATIENT
  Age: 28 Year
  Sex: Male

DRUGS (3)
  1. PROPAFENONE [Suspect]
     Indication: PRODUCT USED FOR UNKNOWN INDICATION
     Route: 048
  2. VERAPAMIL [Concomitant]
     Indication: PRODUCT USED FOR UNKNOWN INDICATION
  3. BENZODIAZEPINE BROMAZEPAMUM [Concomitant]
     Indication: PRODUCT USED FOR UNKNOWN INDICATION

REACTIONS (45)
  - Intentional overdose [Unknown]
  - Suicide attempt [Unknown]
  - Coma [Unknown]
  - Acidosis [Unknown]
  - Depressed level of consciousness [Recovering/Resolving]
  - Muscular weakness [Recovering/Resolving]
  - Condition aggravated [Recovering/Resolving]
  - Hyperhidrosis [Unknown]
  - Pupillary light reflex tests abnormal [Unknown]
  - Respiratory depression [Unknown]
  - Cyanosis [Unknown]
  - Ventricular asystole [Recovered/Resolved]
  - Hypotension [Unknown]
  - Sinoatrial block [Unknown]
  - Supraventricular tachycardia [Unknown]
  - Ventricular arrhythmia [Unknown]
  - Ventricular tachycardia [Recovered/Resolved]
  - Ventricular fibrillation [Recovered/Resolved]
  - Grand mal convulsion [Recovering/Resolving]
  - Nodal rhythm [Recovered/Resolved]
  - Cardiac arrest [Fatal]
  - Toxicity to various agents [Fatal]
  - Pallor [Unknown]
  - Gastrointestinal hypomotility [Unknown]
  - Ventricular extrasystoles [Unknown]
  - Somnolence [Unknown]
  - Brain stem syndrome [Unknown]
  - Hypoxia [Unknown]
  - Central nervous system lesion [Unknown]
  - Neuromyopathy [Unknown]
  - Retrograde amnesia [Unknown]
  - Base excess decreased [Unknown]
  - Electrocardiogram PR prolongation [Unknown]
  - Electrocardiogram QRS complex prolonged [Unknown]
  - Leukocytosis [Unknown]
  - Basophilia [Unknown]
  - Eosinophilia [Unknown]
  - Lymphopenia [Unknown]
  - Blood creatinine increased [Unknown]
  - Aspartate aminotransferase increased [Unknown]
  - Alanine aminotransferase increased [Unknown]
  - Blood creatine phosphokinase increased [Unknown]
  - Amylase increased [Unknown]
  - Myoglobin blood increased [Unknown]
  - Hypercapnia [Unknown]
